FAERS Safety Report 5852357-2 (Version None)
Quarter: 2008Q3

REPORT INFORMATION
  Report Type: 
  Country: None (occurrence: None)
  Receive Date: 20080819
  Receipt Date: 20080804
  Transmission Date: 20090109
  Serious: Yes (Death, Hospitalization, Other)
  Sender: FDA-Public Use
  Company Number: KADN20080310

PATIENT
  Age: 24 Year
  Sex: Male

DRUGS (3)
  1. MORPHINE [Suspect]
     Dosage: ORAL
     Route: 048
     Dates: end: 20060101
  2. OXYCODONE COMBINATION TABLET [Suspect]
     Dosage: ONE TABLET, ONCE, ORAL
     Route: 048
     Dates: end: 20060101
  3. THC [Suspect]
     Dates: end: 20060101

REACTIONS (12)
  - ACIDOSIS [None]
  - ALANINE AMINOTRANSFERASE INCREASED [None]
  - ASPARTATE AMINOTRANSFERASE INCREASED [None]
  - BLOOD CREATININE INCREASED [None]
  - CARDIAC ARREST [None]
  - CONVULSION [None]
  - DRUG SCREEN POSITIVE [None]
  - HYPOTENSION [None]
  - INCORRECT DOSE ADMINISTERED [None]
  - LOSS OF CONSCIOUSNESS [None]
  - MYDRIASIS [None]
  - RESPIRATORY DISTRESS [None]
